FAERS Safety Report 7463736-4 (Version None)
Quarter: 2011Q2

REPORT INFORMATION
  Report Type: 
  Country: None (occurrence: None)
  Receive Date: 20110506
  Receipt Date: 20110322
  Transmission Date: 20111010
  Serious: Yes (Hospitalization)
  Sender: FDA-Public Use
  Company Number: US-BAYER-201038390NA

PATIENT
  Age: 37 Year
  Sex: Female

DRUGS (6)
  1. YASMIN [Suspect]
     Indication: ACNE
  2. HERBAL PREPARATION [Concomitant]
  3. YAZ [Suspect]
     Indication: ACNE
  4. DROSPIRENONE AND ETHINYL ESTRADIOL [Suspect]
     Indication: ACNE
  5. TYLENOL 1 [Concomitant]
  6. SLLEPING PILLS [Concomitant]

REACTIONS (3)
  - MIGRAINE [None]
  - INJURY [None]
  - CEREBROVASCULAR ACCIDENT [None]
